FAERS Safety Report 16716738 (Version 1)
Quarter: 2019Q3

REPORT INFORMATION
  Report Type: Spontaneous
  Country: US (occurrence: US)
  Receive Date: 20190819
  Receipt Date: 20190819
  Transmission Date: 20191005
  Serious: Yes (Death, Hospitalization, Other)
  Sender: FDA-Public Use
  Company Number: US-JNJFOC-20190818504

PATIENT
  Age: 78 Year
  Sex: Male

DRUGS (1)
  1. INVOKAMET [Suspect]
     Active Substance: CANAGLIFLOZIN\METFORMIN HYDROCHLORIDE
     Indication: PRODUCT USED FOR UNKNOWN INDICATION
     Dosage: 50 MG- 1000 MG
     Route: 048

REACTIONS (4)
  - Toe amputation [Unknown]
  - Osteomyelitis [Unknown]
  - Skin ulcer [Unknown]
  - Cellulitis [Unknown]

NARRATIVE: CASE EVENT DATE: 20140407
